FAERS Safety Report 13933053 (Version 1)
Quarter: 2017Q3

REPORT INFORMATION
  Report Type: Spontaneous
  Country: JP (occurrence: JP)
  Receive Date: 20170904
  Receipt Date: 20170904
  Transmission Date: 20171127
  Serious: Yes (Death)
  Sender: FDA-Public Use
  Company Number: JP-PFIZER INC-2015310231

PATIENT
  Age: 47 Year
  Sex: Female
  Weight: 46.6 kg

DRUGS (2)
  1. PACLITAXEL. [Suspect]
     Active Substance: PACLITAXEL
     Indication: HEPATIC ANGIOSARCOMA
     Dosage: 100 MG/SESSION ONCE A WEEK
  2. PACLITAXEL. [Suspect]
     Active Substance: PACLITAXEL
     Dosage: 35 MG/SESSION ONCE A FORTNIGHT

REACTIONS (2)
  - Neutropenia [Fatal]
  - Neoplasm progression [Fatal]
